FAERS Safety Report 7340067-4 (Version None)
Quarter: 2011Q1

REPORT INFORMATION
  Report Type: 
  Country: None (occurrence: None)
  Receive Date: 20110309
  Receipt Date: 20110301
  Transmission Date: 20110831
  Serious: Yes (Death)
  Sender: FDA-Public Use
  Company Number: PHHY2010JP85153

PATIENT
  Sex: Female

DRUGS (2)
  1. CGP 42446 [Suspect]
     Indication: METASTASES TO BONE
     Dosage: 4MG (SINGLE DOSE)
     Route: 041
     Dates: start: 20080207
  2. VASOLATOR [Concomitant]
     Indication: HYPERTENSION
     Dosage: 1 DF
     Route: 062
     Dates: start: 20080204, end: 20080207

REACTIONS (1)
  - PNEUMONIA [None]
